FAERS Safety Report 13143048 (Version 2)
Quarter: 2017Q1

REPORT INFORMATION
  Report Type: Spontaneous
  Country: DE (occurrence: DE)
  Receive Date: 20170123
  Receipt Date: 20170215
  Transmission Date: 20170428
  Serious: Yes (Hospitalization, Other)
  Sender: FDA-Public Use
  Company Number: DE-AMGEN-DEUSP2017007821

PATIENT
  Age: 58 Year
  Sex: Male

DRUGS (2)
  1. PANITUMUMAB [Suspect]
     Active Substance: PANITUMUMAB
     Indication: COLON CANCER METASTATIC
     Dosage: UNK
     Route: 042
     Dates: start: 201502, end: 201505
  2. PANITUMUMAB [Suspect]
     Active Substance: PANITUMUMAB
     Indication: METASTASES TO LUNG
     Dosage: UNK
     Route: 065

REACTIONS (9)
  - Enterococcus test positive [Unknown]
  - Herpes zoster disseminated [Recovered/Resolved]
  - Scab [Unknown]
  - Rash pustular [Unknown]
  - Papule [Unknown]
  - Blister [Unknown]
  - Klebsiella test positive [Unknown]
  - General physical health deterioration [Recovering/Resolving]
  - Dermatitis acneiform [Unknown]

NARRATIVE: CASE EVENT DATE: 20150505
